FAERS Safety Report 9699043 (Version 1)
Quarter: 2013Q4

REPORT INFORMATION
  Report Type: Spontaneous
  Country: US (occurrence: None)
  Receive Date: 20131101
  Receipt Date: 20131101
  Transmission Date: 20140711
  Serious: Yes (Other)
  Sender: FDA-Public Use
  Company Number: 2013038643

PATIENT
  Age: 37 Year
  Sex: Female
  Weight: 81.65 kg

DRUGS (15)
  1. HIZENTRA [Suspect]
     Indication: IMMUNODEFICIENCY COMMON VARIABLE
     Dosage: 8 G 1X/ WEEK SUBCUTANEOUS), (8 G 1X/WEEK, ??-???-2013 SUBCUTANEOUS)
     Route: 058
     Dates: start: 20130911
  2. HIZENTRA [Suspect]
     Indication: HYPOGLOBULINAEMIA
     Dosage: 8 G 1X/ WEEK SUBCUTANEOUS), (8 G 1X/WEEK, ??-???-2013 SUBCUTANEOUS)
     Route: 058
     Dates: start: 20130911
  3. BIAXIN (CLARITHROMYCIN) [Concomitant]
  4. LEUCOVORIN CALCIUM (CALCIUM FOLINATE) [Concomitant]
  5. SYNTHROID (LEVOTHYROXINE SODIUM) [Concomitant]
  6. METOPROLOL TARTRATE (METOPROLOL TARTRATE) [Concomitant]
  7. SAVELLA (MILNACIPRAN) [Concomitant]
  8. VITAMIN D2 (ERGOCACLCIFEROL) [Concomitant]
  9. TOPAMAX (TOPIRAMATE) [Concomitant]
  10. FLEXERIL (CYCLOBENZAPRINE HYDROCHLORIDE) [Concomitant]
  11. METHOTREXATE (METHOTREXATE) [Concomitant]
  12. ACETAMINOPHEN (PARACETAMOL) [Concomitant]
  13. DIPHENHYDRAMINE (DIPHENHYDRAMIE) [Concomitant]
  14. EPI-PEN (EPINEPHRINE HYDROCHLORIDE) [Concomitant]
  15. LMX (LIDOCAINE) [Concomitant]

REACTIONS (5)
  - Haematuria [None]
  - Proteinuria [None]
  - Blood potassium decreased [None]
  - Disturbance in attention [None]
  - Fatigue [None]
